FAERS Safety Report 4619558-2 (Version None)
Quarter: 2005Q1

REPORT INFORMATION
  Report Type: 
  Country: None (occurrence: None)
  Receive Date: 20050318
  Receipt Date: 20050318
  Transmission Date: 20050727
  Serious: Yes (Hospitalization)
  Sender: FDA-Public Use
  Company Number: None

PATIENT
  Sex: Male
  Weight: 70.3075 kg

DRUGS (2)
  1. INSULIN HUMULIN/LANTUS [Suspect]
     Indication: DIABETES MELLITUS
     Dosage: 40/25 ?
  2. ENALAPRIL [Concomitant]

REACTIONS (3)
  - HYPOGLYCAEMIA [None]
  - INADEQUATE DIET [None]
  - MENTAL STATUS CHANGES [None]
